FAERS Safety Report 9157396 (Version 2)
Quarter: 2013Q2

REPORT INFORMATION
  Report Type: Spontaneous
  Country: NO (occurrence: None)
  Receive Date: 20130212
  Receipt Date: 20130530
  Transmission Date: 20140414
  Serious: Yes (Hospitalization)
  Sender: FDA-Public Use
  Company Number: AUR-APL-2013-00319

PATIENT
  Age: 62 Year
  Sex: Male

DRUGS (6)
  1. SIMVASTATIN [Suspect]
     Indication: HYPERCHOLESTEROLAEMIA
     Dosage: 1 IN 1 D
     Route: 048
  2. MAREVAN [Suspect]
     Indication: PULMONARY EMBOLISM
     Route: 048
  3. DICLOFENAC (DICLOFENAC) [Concomitant]
  4. SELO-ZOK (METOPROLOL SUCCINATE) [Concomitant]
  5. ADALAT OROS (NIFEDIPINE) [Concomitant]
  6. PARACETAMOL (PARACETAMOL) [Concomitant]

REACTIONS (4)
  - Fatigue [None]
  - Diarrhoea [None]
  - Hepatitis acute [None]
  - Liver function test abnormal [None]
